FAERS Safety Report 18429107 (Version 1)
Quarter: 2020Q4

REPORT INFORMATION
  Report Type: Spontaneous
  Country: PT (occurrence: PT)
  Receive Date: 20201026
  Receipt Date: 20201026
  Transmission Date: 20210114
  Serious: Yes (Other)
  Sender: FDA-Public Use
  Company Number: PT-B.I. PHARMACEUTICALS,INC./RIDGEFIELD-2020-BI-056125

PATIENT
  Age: 70 Year
  Sex: Female

DRUGS (2)
  1. PRADAXA [Suspect]
     Active Substance: DABIGATRAN ETEXILATE MESYLATE
     Indication: ATRIAL FIBRILLATION
     Dosage: TAKES ONE TABLET IN THE MORNING AND ANOTHER ONE AT NIGHT
     Dates: start: 2019, end: 20201017
  2. PRADAXA [Suspect]
     Active Substance: DABIGATRAN ETEXILATE MESYLATE
     Dosage: YESTERDAY (18-OCT-2020) THE PATIENT DID A TABLET ONLY IN THE MORNING AND TODAY (19-OCT-2020) THE PAT
     Dates: start: 20201018

REACTIONS (11)
  - Parkinson^s disease [Not Recovered/Not Resolved]
  - Dementia [Not Recovered/Not Resolved]
  - Malaise [Not Recovered/Not Resolved]
  - Venous thrombosis [Not Recovered/Not Resolved]
  - Ill-defined disorder [Not Recovered/Not Resolved]
  - Hypersomnia [Recovering/Resolving]
  - Tenderness [Not Recovered/Not Resolved]
  - Thyroid function test abnormal [Not Recovered/Not Resolved]
  - Headache [Not Recovered/Not Resolved]
  - Mass [Not Recovered/Not Resolved]
  - Limb mass [Not Recovered/Not Resolved]

NARRATIVE: CASE EVENT DATE: 202010
